FAERS Safety Report 5004287-6 (Version None)
Quarter: 2006Q2

REPORT INFORMATION
  Report Type: 
  Country: None (occurrence: None)
  Receive Date: 20060517
  Receipt Date: 20050915
  Transmission Date: 20061013
  Serious: Yes (Hospitalization, Disabling, Other)
  Sender: FDA-Public Use
  Company Number: US-MERCK-0509USA02101

PATIENT
  Age: 35 Year
  Sex: Female
  Weight: 148 kg

DRUGS (1)
  1. VIOXX [Suspect]
     Indication: PAIN
     Route: 048
     Dates: start: 20020624, end: 20020801

REACTIONS (13)
  - ABDOMINAL PAIN [None]
  - ATELECTASIS [None]
  - CARDIOMEGALY [None]
  - CORONARY ARTERY DISEASE [None]
  - DYSPNOEA [None]
  - HAEMOTHORAX [None]
  - HEPATOMEGALY [None]
  - ISCHAEMIC CEREBRAL INFARCTION [None]
  - MENTAL STATUS CHANGES [None]
  - NAUSEA [None]
  - SEPSIS [None]
  - UMBILICAL HERNIA [None]
  - VOMITING [None]
